FAERS Safety Report 4555207-X (Version None)
Quarter: 2004Q4

REPORT INFORMATION
  Report Type: 
  Country: None (occurrence: None)
  Receive Date: 20041227
  Receipt Date: 20041103
  Transmission Date: 20050328
  Serious: No
  Sender: FDA-Public Use
  Company Number: 04P-163-0279867-00

PATIENT
  Age: 72 Year
  Sex: Female
  Weight: 58.514 kg

DRUGS (7)
  1. HUMIRA [Suspect]
     Indication: RHEUMATOID ARTHRITIS
     Dosage: 40 MG, 1 IN 2 WK, SUBCUTANEOUS
     Route: 058
     Dates: start: 20040601
  2. HYDROXYCHLOROQUINE PHOSPHATE [Concomitant]
  3. PREDNISONE [Concomitant]
  4. ALENDRONATE SODIUM [Concomitant]
  5. MULTIVITAMIN [Concomitant]
  6. CALCIUM GLUCONATE [Concomitant]
  7. BISOPROLOL FUMARATE [Concomitant]

REACTIONS (1)
  - ATRIAL FIBRILLATION [None]
